FAERS Safety Report 14364791 (Version 9)
Quarter: 2018Q2

REPORT INFORMATION
  Report Type: Report from Study
  Country: US (occurrence: US)
  Receive Date: 20180108
  Receipt Date: 20180606
  Transmission Date: 20180711
  Serious: Yes (Hospitalization)
  Sender: FDA-Public Use
  Company Number: US-ACTELION-A-US2017-155408

PATIENT
  Age: 70 Year
  Sex: Female
  Weight: 77.98 kg

DRUGS (6)
  1. VELETRI [Suspect]
     Active Substance: EPOPROSTENOL
     Indication: PULMONARY ARTERIAL HYPERTENSION
     Dosage: 10 NG/KG, PER MIN
     Route: 042
  2. OPSUMIT [Concomitant]
     Active Substance: MACITENTAN
  3. ADEMPAS [Concomitant]
     Active Substance: RIOCIGUAT
  4. AMLODIPINE [Concomitant]
     Active Substance: AMLODIPINE BESYLATE
  5. VELETRI [Suspect]
     Active Substance: EPOPROSTENOL
     Dosage: 6 NG/KG, PER MIN
     Route: 042
  6. ADCIRCA [Concomitant]
     Active Substance: TADALAFIL

REACTIONS (17)
  - Chills [Recovering/Resolving]
  - Abdominal distension [Unknown]
  - Blood pressure decreased [Recovering/Resolving]
  - Oedema peripheral [Unknown]
  - Dyspnoea exertional [Unknown]
  - Diarrhoea [Unknown]
  - Dyspnoea [Recovering/Resolving]
  - Ascites [Unknown]
  - Paracentesis [Unknown]
  - Catheter site pruritus [Unknown]
  - Dizziness [Unknown]
  - Vomiting [Unknown]
  - Pruritus generalised [Unknown]
  - Cough [Recovering/Resolving]
  - Oedema [Recovering/Resolving]
  - Pyrexia [Recovering/Resolving]
  - Haematochezia [Unknown]
